FAERS Safety Report 5908160-8 (Version None)
Quarter: 2008Q4

REPORT INFORMATION
  Report Type: 
  Country: None (occurrence: None)
  Receive Date: 20081003
  Receipt Date: 20080923
  Transmission Date: 20090506
  Serious: Yes (Other)
  Sender: FDA-Public Use
  Company Number: CA-PFIZER INC-2008081261

PATIENT
  Sex: Male

DRUGS (2)
  1. LYRICA [Suspect]
  2. PROZAC [Concomitant]

REACTIONS (1)
  - HYPOMANIA [None]
